FAERS Safety Report 13187568 (Version 1)
Quarter: 2017Q1

REPORT INFORMATION
  Report Type: Spontaneous
  Country: US (occurrence: US)
  Receive Date: 20170206
  Receipt Date: 20170206
  Transmission Date: 20170428
  Serious: No
  Sender: FDA-Public Use
  Company Number: US-PFIZER INC-2017047201

PATIENT
  Sex: Male
  Weight: 120.66 kg

DRUGS (1)
  1. VIAGRA [Suspect]
     Active Substance: SILDENAFIL CITRATE
     Indication: SEXUAL DYSFUNCTION
     Dosage: 100 MG, ONE TIME A DAY (SOMETIMES ONE AND A HALF A DAY)
     Dates: start: 201611

REACTIONS (2)
  - Intentional product misuse [Unknown]
  - Drug ineffective [Unknown]
